FAERS Safety Report 8601095-1 (Version None)
Quarter: 2012Q3

REPORT INFORMATION
  Report Type: 
  Country: None (occurrence: None)
  Receive Date: 20120817
  Receipt Date: 20120810
  Transmission Date: 20120928
  Serious: Yes (Hospitalization)
  Sender: FDA-Public Use
  Company Number: PHHY2012IT070071

PATIENT
  Sex: Male

DRUGS (2)
  1. XELODA [Concomitant]
  2. OXALIPLATIN [Suspect]
     Indication: RECTAL CANCER
     Dosage: 221 MG, UNK
     Route: 042
     Dates: start: 20120319, end: 20120319

REACTIONS (6)
  - SLOW SPEECH [None]
  - GAIT DISTURBANCE [None]
  - PARAESTHESIA [None]
  - MUSCLE SPASMS [None]
  - VISION BLURRED [None]
  - INJECTION SITE PAIN [None]
